FAERS Safety Report 9735622 (Version 1)
Quarter: 2013Q4

REPORT INFORMATION
  Report Type: Spontaneous
  Country: MX (occurrence: MX)
  Receive Date: 20131206
  Receipt Date: 20131206
  Transmission Date: 20140711
  Serious: Yes (Other)
  Sender: FDA-Public Use
  Company Number: PHHY2013MX141453

PATIENT
  Age: 71 Year
  Sex: Female

DRUGS (3)
  1. MIFLONIDE [Suspect]
     Indication: CHRONIC OBSTRUCTIVE PULMONARY DISEASE
     Dosage: 400 UG, 1 CAPSULE DAILY
     Dates: start: 201302, end: 201310
  2. MIFLONIDE [Suspect]
     Dosage: 400 UG, (200 UG, 2 CAPSULES) DAILY
     Dates: start: 201310
  3. ONBREZ [Suspect]
     Indication: CHRONIC OBSTRUCTIVE PULMONARY DISEASE
     Dosage: 1 DF, DALIY
     Dates: start: 201302

REACTIONS (1)
  - Upper limb fracture [Recovering/Resolving]
